FAERS Safety Report 9224243 (Version 1)
Quarter: 2013Q1

REPORT INFORMATION
  Report Type: Spontaneous
  Country: US (occurrence: None)
  Receive Date: 20120914
  Receipt Date: 20120914
  Transmission Date: 20140127
  Serious: Yes (Other)
  Sender: FDA-Public Use
  Company Number: JPI-P-016714

PATIENT
  Age: 39 Year
  Sex: Female
  Weight: 61.24 kg

DRUGS (3)
  1. XYREM (500 MILLIGRAM/MILLILITERS, SOLUTION) (SODIUM OXYBATE) [Suspect]
     Indication: SOMNOLENCE
     Dosage: 4.5GM (2.25GM, 2 IN 1) ORAL
     Route: 048
     Dates: start: 20110805, end: 201108
  2. DESVENLAFAXINE [Suspect]
     Indication: ANXIETY
     Dosage: (UNKNOWN)
     Dates: start: 2011, end: 2011
  3. VITAMINS [Concomitant]

REACTIONS (13)
  - Suicidal ideation [None]
  - Anxiety [None]
  - Abnormal sleep-related event [None]
  - Respiratory disorder [None]
  - Cough [None]
  - Arthralgia [None]
  - Joint stiffness [None]
  - Dry throat [None]
  - Alopecia [None]
  - Agitation [None]
  - Headache [None]
  - Disorientation [None]
  - Feeling abnormal [None]
